FAERS Safety Report 6427205-2 (Version None)
Quarter: 2009Q4

REPORT INFORMATION
  Report Type: 
  Country: None (occurrence: None)
  Receive Date: 20091104
  Receipt Date: 20091030
  Transmission Date: 20100525
  Serious: Yes (Hospitalization, Congenital Anomaly)
  Sender: FDA-Public Use
  Company Number: A0662909A

PATIENT
  Sex: Female
  Weight: 3.8 kg

DRUGS (4)
  1. PAXIL [Suspect]
     Indication: DRUG USE FOR UNKNOWN INDICATION
  2. MACROBID [Concomitant]
  3. TYLENOL W/ CODEINE [Concomitant]
  4. UNSPECIFIED MEDICATION [Concomitant]
     Indication: DEHYDRATION

REACTIONS (16)
  - BRONCHITIS [None]
  - COGNITIVE DISORDER [None]
  - CONGENITAL ANOMALY [None]
  - CRYING [None]
  - DRUG EXPOSURE DURING PREGNANCY [None]
  - GASTRIC PERFORATION [None]
  - HAEMATEMESIS [None]
  - HEADACHE [None]
  - INTRA-ABDOMINAL HAEMANGIOMA [None]
  - KLIPPEL-TRENAUNAY SYNDROME [None]
  - OTITIS MEDIA CHRONIC [None]
  - POST PROCEDURAL COMPLICATION [None]
  - SCLERAL DISCOLOURATION [None]
  - SPEECH DISORDER DEVELOPMENTAL [None]
  - UPPER GASTROINTESTINAL HAEMORRHAGE [None]
  - VISUAL IMPAIRMENT [None]
